FAERS Safety Report 9885407 (Version 2)
Quarter: 2014Q1

REPORT INFORMATION
  Report Type: Report from Study
  Country: DZ (occurrence: DZ)
  Receive Date: 20140210
  Receipt Date: 20140210
  Transmission Date: 20141002
  Serious: Yes (Death, Other)
  Sender: FDA-Public Use
  Company Number: DZ-ROCHE-765506

PATIENT
  Age: 31 Year
  Sex: Female

DRUGS (6)
  1. TRASTUZUMAB [Suspect]
     Indication: BREAST CANCER
     Route: 065
     Dates: start: 20101206, end: 20110207
  2. TRASTUZUMAB [Suspect]
     Route: 065
     Dates: start: 20110207
  3. CARBOPLATIN [Suspect]
     Indication: BREAST CANCER
     Route: 065
  4. GEMCITABINE [Suspect]
     Indication: BREAST CANCER
     Route: 065
  5. AMOXICILLINE [Concomitant]
     Indication: INFECTION
     Route: 048
     Dates: start: 20110218, end: 20110227
  6. FLUIMICIL [Concomitant]
     Indication: INFECTION
     Route: 048
     Dates: start: 20110218, end: 20110227

REACTIONS (4)
  - Disease progression [Fatal]
  - Aphasia [Unknown]
  - Headache [Unknown]
  - VIIth nerve paralysis [Unknown]
